FAERS Safety Report 16500822 (Version 1)
Quarter: 2019Q3

REPORT INFORMATION
  Report Type: Spontaneous
  Country: AU (occurrence: AU)
  Receive Date: 20190701
  Receipt Date: 20190701
  Transmission Date: 20191004
  Serious: Yes (Death, Other)
  Sender: FDA-Public Use
  Company Number: AU-B.I. PHARMACEUTICALS,INC./RIDGEFIELD-2019-BI-028221

PATIENT
  Sex: Male

DRUGS (4)
  1. GILOTRIF [Suspect]
     Active Substance: AFATINIB
     Indication: ADENOCARCINOMA
     Route: 065
  2. GILOTRIF [Suspect]
     Active Substance: AFATINIB
     Indication: EGFR GENE MUTATION
  3. CARBOPLATIN;PEMETREXED [Concomitant]
     Indication: PRODUCT USED FOR UNKNOWN INDICATION
     Route: 065
  4. XGEVA [Concomitant]
     Active Substance: DENOSUMAB
     Indication: PRODUCT USED FOR UNKNOWN INDICATION
     Route: 065

REACTIONS (12)
  - Death [Fatal]
  - Malignant neoplasm progression [Unknown]
  - Metastases to lung [Unknown]
  - Metastases to central nervous system [Unknown]
  - Rash [Unknown]
  - Dermoid cyst [Unknown]
  - Bone lesion [Unknown]
  - Sciatica [Unknown]
  - Diarrhoea [Unknown]
  - Skin lesion [Unknown]
  - Hypokalaemia [Unknown]
  - Vertebral lesion [Unknown]

NARRATIVE: CASE EVENT DATE: 201501
